FAERS Safety Report 4847422-2 (Version None)
Quarter: 2005Q4

REPORT INFORMATION
  Report Type: 
  Country: None (occurrence: None)
  Receive Date: 20051205
  Receipt Date: 20051129
  Transmission Date: 20060501
  Serious: Yes (Hospitalization)
  Sender: FDA-Public Use
  Company Number: 071105003/258 AE

PATIENT
  Age: 54 Year
  Sex: Male
  Weight: 87.7 kg

DRUGS (7)
  1. TESTIM [Suspect]
     Indication: ANDROGEN DEFICIENCY
     Dosage: 100 MG, DAILY, TRANSDERMAL
     Route: 062
     Dates: start: 20050914, end: 20051025
  2. PLACEBO [Suspect]
     Indication: ANDROGEN DEFICIENCY
     Dosage: 100 MG, DAILY, TRANSDERMAL
     Route: 062
     Dates: start: 20050803, end: 20050913
  3. VITAMIN E [Concomitant]
  4. ASCORBIC ACID [Concomitant]
  5. VITAMIN B-12 [Concomitant]
  6. ZINC [Concomitant]
  7. COSAMIN DS [Concomitant]

REACTIONS (9)
  - ASTHENIA [None]
  - CAROTID ARTERY ATHEROMA [None]
  - DIZZINESS [None]
  - DYSARTHRIA [None]
  - HEMIPARESIS [None]
  - LACUNAR INFARCTION [None]
  - SYNCOPE [None]
  - VISION BLURRED [None]
  - VISUAL DISTURBANCE [None]
